FAERS Safety Report 5166715-5 (Version None)
Quarter: 2006Q4

REPORT INFORMATION
  Report Type: 
  Country: None (occurrence: None)
  Receive Date: 20061207
  Receipt Date: 20061128
  Transmission Date: 20070319
  Serious: Yes (Hospitalization)
  Sender: FDA-Public Use
  Company Number: US-BRISTOL-MYERS SQUIBB COMPANY-13593306

PATIENT
  Age: 72 Year
  Sex: Male
  Weight: 64 kg

DRUGS (4)
  1. CETUXIMAB [Suspect]
     Indication: GASTRIC CANCER
     Dates: start: 20061113, end: 20061113
  2. PACLITAXEL [Suspect]
     Indication: GASTRIC CANCER
     Dates: start: 20061113, end: 20061113
  3. CARBOPLATIN [Suspect]
     Indication: GASTRIC CANCER
     Dates: start: 20061113, end: 20061113
  4. RADIATION THERAPY [Suspect]
     Indication: GASTRIC CANCER
     Dates: start: 20061115, end: 20061115

REACTIONS (3)
  - CHILLS [None]
  - NEUTROPENIA [None]
  - PYREXIA [None]
